FAERS Safety Report 20664808 (Version 2)
Quarter: 2022Q2

REPORT INFORMATION
  Report Type: Report from Study
  Country: ES (occurrence: ES)
  Receive Date: 20220401
  Receipt Date: 20220419
  Transmission Date: 20220721
  Serious: Yes (Hospitalization)
  Sender: FDA-Public Use
  Company Number: ES-009507513-2203ESP004479

PATIENT
  Age: 12 Year
  Sex: Male
  Weight: 31.5 kg

DRUGS (8)
  1. IRINOTECAN HYDROCHLORIDE [Suspect]
     Active Substance: IRINOTECAN HYDROCHLORIDE
     Indication: Glioneuronal tumour
     Dosage: 58 MILLIGRAM, CYCLICAL (DAYS 1 TO 5 OF A 21 DAY CYCLE)
     Route: 042
     Dates: start: 20211129
  2. IRINOTECAN HYDROCHLORIDE [Suspect]
     Active Substance: IRINOTECAN HYDROCHLORIDE
     Dosage: 58 MILLIGRAM, CYCLICAL (DAYS 1 TO 5 OF A 21 DAY CYCLE)
     Route: 042
     Dates: start: 20211220, end: 20220107
  3. TEMOZOLOMIDE [Suspect]
     Active Substance: TEMOZOLOMIDE
     Indication: Glioneuronal tumour
     Dosage: 120 MILLIGRAM, CYCLICAL (DAYS 1 TO 5 OF A 21 DAY CYCLE)
     Route: 048
     Dates: start: 20211129
  4. TEMOZOLOMIDE [Suspect]
     Active Substance: TEMOZOLOMIDE
     Dosage: 120 MILLIGRAM, CYCLICAL (DAYS 1 TO 5 OF A 21 DAY CYCLE)
     Route: 048
     Dates: start: 20211220, end: 20220107
  5. ABEMACICLIB [Suspect]
     Active Substance: ABEMACICLIB
     Indication: Glioneuronal tumour
     Dosage: 75 MILLIGRAM, BID (TWICE A DAY)
     Route: 048
     Dates: start: 20211129, end: 20220110
  6. TRIMETHOPRIM [Concomitant]
     Active Substance: TRIMETHOPRIM
     Dates: start: 20211203
  7. SULFAMETHOXAZOLE [Concomitant]
     Active Substance: SULFAMETHOXAZOLE
     Dates: start: 20211203
  8. LEVETIRACETAM [Concomitant]
     Active Substance: LEVETIRACETAM
     Dates: start: 20160415

REACTIONS (2)
  - Vomiting [Recovering/Resolving]
  - Dysgeusia [Recovered/Resolved with Sequelae]

NARRATIVE: CASE EVENT DATE: 20220125
